FAERS Safety Report 8105108-5 (Version None)
Quarter: 2012Q1

REPORT INFORMATION
  Report Type: 
  Country: None (occurrence: None)
  Receive Date: 20120201
  Receipt Date: 20120123
  Transmission Date: 20120608
  Serious: Yes (Hospitalization)
  Sender: FDA-Public Use
  Company Number: DE-PFIZER INC-2010056517

PATIENT
  Age: 67 Year
  Sex: Male

DRUGS (10)
  1. PREDNISONE TAB [Suspect]
     Indication: PROSTATE CANCER
     Dosage: 5 MG, 2X/DAY
     Route: 048
     Dates: start: 20100315
  2. SOLIFENACIN [Concomitant]
     Indication: BLADDER DISORDER
     Dosage: UNK
     Dates: start: 20100204
  3. SUNITINIB MALATE [Suspect]
     Indication: PROSTATE CANCER
     Dosage: 37.5 MG, 1X/DAY
     Route: 048
     Dates: start: 20100315, end: 20100504
  4. FLUMETASON PIVALATE/TRICLOSAN [Concomitant]
     Indication: PALMAR-PLANTAR ERYTHRODYSAESTHESIA SYNDROME
     Dosage: UNK
     Dates: start: 20100406
  5. DONTISOLON [Concomitant]
     Indication: STOMATITIS
     Dosage: UNK
     Dates: start: 20100406
  6. BISOPROLOL [Concomitant]
     Indication: HYPERTENSION
     Dosage: UNK
     Route: 048
     Dates: start: 20050101
  7. OMEPRAZOLE [Concomitant]
     Indication: GASTRITIS PROPHYLAXIS
     Dosage: UNK
     Dates: start: 20091201
  8. MOXONIDINE [Concomitant]
     Indication: HYPERTENSION
     Dosage: UNK
     Dates: start: 20050101
  9. NOVALGIN [Concomitant]
     Indication: SCIATICA
     Dosage: UNK
     Dates: start: 20100329
  10. PROFACT - SLOW RELEASE [Concomitant]
     Indication: PROSTATE CANCER
     Dosage: UNK
     Dates: start: 20051201

REACTIONS (2)
  - ASTHENIA [None]
  - CIRCULATORY COLLAPSE [None]
